FAERS Safety Report 5909351-2 (Version None)
Quarter: 2008Q4

REPORT INFORMATION
  Report Type: 
  Country: None (occurrence: None)
  Receive Date: 20081006
  Receipt Date: 20080924
  Transmission Date: 20090506
  Serious: Yes (Life-Threatening, Hospitalization)
  Sender: FDA-Public Use
  Company Number: GR-PFIZER INC-2008080943

PATIENT
  Age: 65 Year
  Sex: Female

DRUGS (2)
  1. LYRICA [Suspect]
     Indication: SCIATICA
     Route: 048
     Dates: start: 20080901, end: 20080901
  2. DEPON [Concomitant]
     Route: 048

REACTIONS (3)
  - EXTRASYSTOLES [None]
  - HYPOTENSION [None]
  - OFF LABEL USE [None]
